FAERS Safety Report 7813756-2 (Version None)
Quarter: 2011Q4

REPORT INFORMATION
  Report Type: 
  Country: None (occurrence: None)
  Receive Date: 20111014
  Receipt Date: 20110930
  Transmission Date: 20120403
  Serious: Yes (Hospitalization)
  Sender: FDA-Public Use
  Company Number: US-BAYER-2011-019298

PATIENT
  Age: 33 Year
  Sex: Female
  Weight: 80.272 kg

DRUGS (3)
  1. YAZ [Suspect]
     Indication: CONTRACEPTION
     Dosage: UNK
     Route: 048
     Dates: start: 20090301, end: 20090601
  2. YAZ [Suspect]
  3. YAZ [Suspect]
     Indication: PREMENSTRUAL SYNDROME

REACTIONS (5)
  - PAIN IN EXTREMITY [None]
  - OEDEMA PERIPHERAL [None]
  - PAIN [None]
  - DEEP VEIN THROMBOSIS [None]
  - INJURY [None]
